FAERS Safety Report 8559775 (Version 3)
Quarter: 2013Q4

REPORT INFORMATION
  Report Type: Spontaneous
  Country: US (occurrence: None)
  Receive Date: 20120315
  Receipt Date: 20131226
  Transmission Date: 20140711
  Serious: Yes (Other)
  Sender: FDA-Public Use
  Company Number: PHHY2011US38550

PATIENT
  Age: 58 Year
  Sex: Female

DRUGS (4)
  1. GILENYA (FTY) CAPSULE, 0.5MG [Suspect]
     Indication: MULTIPLE SCLEROSIS
     Dosage: 0.5 MG, QD, ORAL
     Route: 048
     Dates: start: 20110429, end: 20110503
  2. LEXAPRO [Concomitant]
  3. DETROL [Concomitant]
  4. AMBIEN [Concomitant]

REACTIONS (4)
  - Decreased appetite [None]
  - Nausea [None]
  - Diarrhoea [None]
  - Gastric disorder [None]
